FAERS Safety Report 6308510-7 (Version None)
Quarter: 2009Q3

REPORT INFORMATION
  Report Type: 
  Country: None (occurrence: None)
  Receive Date: 20090813
  Receipt Date: 20090813
  Transmission Date: 20100115
  Serious: Yes (Hospitalization)
  Sender: FDA-Public Use
  Company Number: JP-EISAI INC.-E2090-00808-SPO-JP

PATIENT
  Sex: Female

DRUGS (5)
  1. TRERIEF [Suspect]
     Indication: PARKINSON'S DISEASE
     Route: 048
     Dates: start: 20090616, end: 20090623
  2. CARBIDOPA AND LEVODOPA [Concomitant]
     Indication: PARKINSON'S DISEASE
     Dates: start: 20060110, end: 20060110
  3. CARBIDOPA AND LEVODOPA [Concomitant]
     Dates: start: 20060110
  4. DOPS [Concomitant]
     Indication: PARKINSON'S DISEASE
     Dates: start: 20060110
  5. EXCEGRAN [Concomitant]
     Indication: PARKINSON'S DISEASE
     Route: 048
     Dates: start: 20090520, end: 20090615

REACTIONS (3)
  - FACE OEDEMA [None]
  - OEDEMA PERIPHERAL [None]
  - PLEURAL EFFUSION [None]
